FAERS Safety Report 15999411 (Version 1)
Quarter: 2019Q1

REPORT INFORMATION
  Report Type: Spontaneous
  Country: US (occurrence: US)
  Receive Date: 20190222
  Receipt Date: 20190222
  Transmission Date: 20190418
  Serious: Yes (Hospitalization)
  Sender: FDA-Public Use
  Company Number: None

PATIENT
  Age: 11 Year
  Sex: Male
  Weight: 23 kg

DRUGS (4)
  1. PHENOBARBITOL [Concomitant]
     Dates: start: 20170101
  2. CLONAZEPAM. [Concomitant]
     Active Substance: CLONAZEPAM
     Dates: start: 20170101
  3. PRIMIDONE. [Concomitant]
     Active Substance: PRIMIDONE
     Dates: start: 20170101
  4. EPIDIOLEX [Suspect]
     Active Substance: CANNABIDIOL
     Indication: SEIZURE
     Route: 048
     Dates: start: 20190211, end: 20190218

REACTIONS (4)
  - Drug level above therapeutic [None]
  - Somnolence [None]
  - Gamma-glutamyltransferase increased [None]
  - Drug interaction [None]

NARRATIVE: CASE EVENT DATE: 20190218
